FAERS Safety Report 24128793 (Version 1)
Quarter: 2024Q3

REPORT INFORMATION
  Report Type: Report from Study
  Country: KR (occurrence: KR)
  Receive Date: 20240723
  Receipt Date: 20240723
  Transmission Date: 20241017
  Serious: Yes (Other)
  Sender: OTSUKA
  Company Number: KR-OTSUKA-2024_020029

PATIENT
  Age: 34 Year
  Sex: Male

DRUGS (10)
  1. TOLVAPTAN [Suspect]
     Active Substance: TOLVAPTAN
     Indication: Congenital cystic kidney disease
     Dosage: 30 MG, QD
     Route: 048
     Dates: start: 20200406, end: 20201216
  2. TOLVAPTAN [Suspect]
     Active Substance: TOLVAPTAN
     Dosage: 15 MG, QD
     Route: 048
     Dates: start: 20200406, end: 20201216
  3. FEXORIN [FEBUXOSTAT] [Concomitant]
     Indication: Hypertension
     Dosage: 20 MG, QD
     Route: 048
     Dates: start: 20190409
  4. DICAMAX [Concomitant]
     Indication: Vitamin D deficiency
     Dosage: 1 DF, QD
     Route: 048
     Dates: start: 20200612
  5. DICAMAX [Concomitant]
     Indication: Prophylaxis
  6. AMLODIPINE CAMSYLATE [Concomitant]
     Active Substance: AMLODIPINE CAMSYLATE
     Indication: Hypertension
     Dosage: 10 MG, QD
     Route: 048
     Dates: start: 20200420, end: 20201018
  7. AMLODIPINE CAMSYLATE [Concomitant]
     Active Substance: AMLODIPINE CAMSYLATE
     Dosage: 5 MG, QD
     Route: 048
     Dates: start: 20201019
  8. OLMEC FORCE [Concomitant]
     Indication: Hypertension
     Dosage: 1 DF, QD (5/20)
     Route: 048
     Dates: start: 20201019
  9. CARVEDILOL [Concomitant]
     Active Substance: CARVEDILOL
     Indication: Hypertension
     Dosage: 25 MG, QD
     Route: 048
     Dates: start: 20200612, end: 20201115
  10. CARVEDILOL [Concomitant]
     Active Substance: CARVEDILOL
     Dosage: 37.5 MG, QD
     Route: 048
     Dates: start: 20201116

REACTIONS (2)
  - Urinary retention [Unknown]
  - Underdose [Unknown]

NARRATIVE: CASE EVENT DATE: 20200406
